FAERS Safety Report 18506831 (Version 1)
Quarter: 2020Q4

REPORT INFORMATION
  Report Type: Spontaneous
  Country: AU (occurrence: AU)
  Receive Date: 20201116
  Receipt Date: 20201116
  Transmission Date: 20210114
  Serious: Yes (Other)
  Sender: FDA-Public Use
  Company Number: AU-BAYER-2020-246045

PATIENT
  Age: 11 Year
  Sex: Male

DRUGS (1)
  1. CLARATYNE [Suspect]
     Active Substance: LORATADINE

REACTIONS (2)
  - Seasonal allergy [None]
  - Coeliac disease [None]
